FAERS Safety Report 23818982 (Version 2)
Quarter: 2024Q2

REPORT INFORMATION
  Report Type: Spontaneous
  Country: US (occurrence: US)
  Receive Date: 20240506
  Receipt Date: 20240507
  Transmission Date: 20240716
  Serious: Yes (Other)
  Sender: FDA-Public Use
  Company Number: US-ALCON LABORATORIES-ALC2024US002188

PATIENT
  Age: 35 Year
  Sex: Female

DRUGS (1)
  1. DEXTRAN\HYPROMELLOSES [Suspect]
     Active Substance: DEXTRAN\HYPROMELLOSES
     Indication: Product used for unknown indication
     Dosage: UNK UNK, QD
     Route: 047

REACTIONS (3)
  - Ophthalmic herpes simplex [Unknown]
  - Corneal opacity [Unknown]
  - Keratopathy [Recovered/Resolved]
